FAERS Safety Report 24604873 (Version 2)
Quarter: 2024Q4

REPORT INFORMATION
  Report Type: Spontaneous
  Country: CN (occurrence: CN)
  Receive Date: 20241111
  Receipt Date: 20241119
  Transmission Date: 20250114
  Serious: Yes (Hospitalization, Other)
  Sender: BRISTOL-MYERS SQUIBB COMPANY
  Company Number: CN-MLMSERVICE-20241101-PI237326-00229-1

PATIENT
  Age: 58 Year
  Sex: Male

DRUGS (12)
  1. PACLITAXEL [Interacting]
     Active Substance: PACLITAXEL
     Indication: Metastases to bone
     Dosage: FIRST CYCLE CONSISTING OF NAB-PACLITAXEL AT 200 MG ON DAYS 1 AND 8 REPEATED EVERY 3 WEEKS
  2. PACLITAXEL [Interacting]
     Active Substance: PACLITAXEL
     Indication: Pancreatic carcinoma stage IV
  3. PACLITAXEL [Interacting]
     Active Substance: PACLITAXEL
     Indication: Pancreatic carcinoma metastatic
  4. PACLITAXEL [Interacting]
     Active Substance: PACLITAXEL
     Indication: Metastases to liver
  5. MORPHINE [Interacting]
     Active Substance: MORPHINE
     Indication: Pain management
     Dosage: SUSTAINED-RELEASE MORPHINE TABLETS AT A DOSAGE OF 30 MG EVERY 12 H
  6. TS-1 [Interacting]
     Active Substance: GIMERACIL\OTERACIL POTASSIUM\TEGAFUR
     Indication: Metastases to bone
     Dosage: FIRST CYCLE CONSISTING OF 60 MG IN THE MORNING AND 40 MG IN THE EVENING FROM DAYS 1 TO 14, REPEATED
  7. TS-1 [Interacting]
     Active Substance: GIMERACIL\OTERACIL POTASSIUM\TEGAFUR
     Indication: Pancreatic carcinoma stage IV
  8. TS-1 [Interacting]
     Active Substance: GIMERACIL\OTERACIL POTASSIUM\TEGAFUR
     Indication: Pancreatic carcinoma metastatic
  9. TS-1 [Interacting]
     Active Substance: GIMERACIL\OTERACIL POTASSIUM\TEGAFUR
     Indication: Metastases to liver
  10. IBANDRONATE SODIUM [Interacting]
     Active Substance: IBANDRONATE SODIUM
     Indication: Metastases to bone
  11. ETHAMBUTOL HYDROCHLORIDE\ISONIAZID\PYRAZINAMIDE\RIFAMPIN [Interacting]
     Active Substance: ETHAMBUTOL HYDROCHLORIDE\ISONIAZID\PYRAZINAMIDE\RIFAMPIN
     Indication: Pulmonary tuberculosis
     Dosage: RIFAMPICIN 150 MG, ISONIAZID 75 MG, PYRAZINAMIDE 400 MG, AND ETHAMBUTOL HYDROCHLORIDE 275 MG PER TAB
  12. ETHAMBUTOL HYDROCHLORIDE\ISONIAZID\PYRAZINAMIDE\RIFAMPIN [Interacting]
     Active Substance: ETHAMBUTOL HYDROCHLORIDE\ISONIAZID\PYRAZINAMIDE\RIFAMPIN
     Indication: Intestinal tuberculosis

REACTIONS (2)
  - Drug interaction [Recovered/Resolved]
  - Intestinal obstruction [Recovered/Resolved]
